FAERS Safety Report 5590272-2 (Version None)
Quarter: 2008Q1

REPORT INFORMATION
  Report Type: 
  Country: None (occurrence: None)
  Receive Date: 20080109
  Receipt Date: 20071226
  Transmission Date: 20080703
  Serious: Yes (Hospitalization)
  Sender: FDA-Public Use
  Company Number: 1-15624607

PATIENT
  Age: 85 Year
  Sex: Female
  Weight: 52.6173 kg

DRUGS (4)
  1. FENTANYL [Suspect]
     Indication: IRRITABLE BOWEL SYNDROME
     Dosage: 1 PATCH X1, TRANSDERMAL
     Route: 062
     Dates: start: 20071221, end: 20071222
  2. WELLBUTRIN [Concomitant]
  3. DEXEDRINE [Concomitant]
  4. AMBIEN [Concomitant]

REACTIONS (13)
  - CONDITION AGGRAVATED [None]
  - DEHYDRATION [None]
  - DEPRESSION [None]
  - DIZZINESS [None]
  - DYSGEUSIA [None]
  - DYSPNOEA [None]
  - FATIGUE [None]
  - FEELING ABNORMAL [None]
  - FIBROMYALGIA [None]
  - NAUSEA [None]
  - PAIN [None]
  - PAROSMIA [None]
  - VOMITING [None]
